FAERS Safety Report 7967730-6 (Version None)
Quarter: 2011Q4

REPORT INFORMATION
  Report Type: 
  Country: None (occurrence: None)
  Receive Date: 20111209
  Receipt Date: 20111209
  Transmission Date: 20120403
  Serious: Yes (Life-Threatening, Hospitalization)
  Sender: FDA-Public Use
  Company Number: None

PATIENT
  Sex: Male
  Weight: 88 kg

DRUGS (1)
  1. DABIGATRAN [Suspect]

REACTIONS (5)
  - GASTROINTESTINAL HAEMORRHAGE [None]
  - BLOOD CREATININE INCREASED [None]
  - FALSE POSITIVE INVESTIGATION RESULT [None]
  - DRUG INEFFECTIVE [None]
  - HAEMATURIA [None]
